FAERS Safety Report 9849079 (Version 1)
Quarter: 2014Q1

REPORT INFORMATION
  Report Type: Spontaneous
  Country: MA (occurrence: MA)
  Receive Date: 20140128
  Receipt Date: 20140128
  Transmission Date: 20141002
  Serious: Yes (Other)
  Sender: FDA-Public Use
  Company Number: PHHY2014MA007744

PATIENT
  Sex: Male

DRUGS (1)
  1. GLIVEC [Suspect]
     Indication: CHRONIC MYELOID LEUKAEMIA
     Dosage: 400 MG PER DAY

REACTIONS (11)
  - Lichenification [Recovering/Resolving]
  - Laryngeal oedema [Recovering/Resolving]
  - Toxic skin eruption [Recovering/Resolving]
  - Dermatitis psoriasiform [Recovering/Resolving]
  - Pigmentation disorder [Recovering/Resolving]
  - Nail disorder [Recovering/Resolving]
  - Rash [Recovering/Resolving]
  - Face oedema [Recovering/Resolving]
  - Dermatitis exfoliative [Recovering/Resolving]
  - Acne [Recovering/Resolving]
  - Rash pustular [Recovering/Resolving]
